FAERS Safety Report 5855190-0 (Version None)
Quarter: 2008Q3

REPORT INFORMATION
  Report Type: 
  Country: None (occurrence: None)
  Receive Date: 20080821
  Receipt Date: 20080805
  Transmission Date: 20090109
  Serious: Yes (Death)
  Sender: FDA-Public Use
  Company Number: 8035925

PATIENT
  Age: 8 Year
  Sex: 0

DRUGS (1)
  1. METHYLPHENIDATE HCL [Suspect]
     Indication: ATTENTION DEFICIT/HYPERACTIVITY DISORDER

REACTIONS (9)
  - ABASIA [None]
  - ACTIVITIES OF DAILY LIVING IMPAIRED [None]
  - DYSARTHRIA [None]
  - DYSGRAPHIA [None]
  - HUNTINGTON'S CHOREA [None]
  - HYPERTONIA [None]
  - INTENTION TREMOR [None]
  - MOTOR DYSFUNCTION [None]
  - RESPIRATORY DISORDER [None]
